FAERS Safety Report 9066777 (Version 2)
Quarter: 2014Q1

REPORT INFORMATION
  Report Type: Spontaneous
  Country: US (occurrence: US)
  Receive Date: 20130214
  Receipt Date: 20140108
  Transmission Date: 20141002
  Serious: Yes (Death)
  Sender: FDA-Public Use
  Company Number: US-GLAXOSMITHKLINE-A1012072A

PATIENT
  Age: 48 Year
  Sex: Female

DRUGS (4)
  1. FLOLAN [Suspect]
     Indication: PRODUCT USED FOR UNKNOWN INDICATION
     Dosage: 36.5NGKM CONTINUOUS
     Route: 042
     Dates: start: 20110903, end: 20130207
  2. LASIX [Concomitant]
  3. COUMADIN [Concomitant]
  4. REVATIO [Concomitant]

REACTIONS (1)
  - Death [Fatal]
